FAERS Safety Report 18483812 (Version 2)
Quarter: 2020Q4

REPORT INFORMATION
  Report Type: Spontaneous
  Country: JP (occurrence: JP)
  Receive Date: 20201109
  Receipt Date: 20201117
  Transmission Date: 20210114
  Serious: Yes (Hospitalization, Other)
  Sender: FDA-Public Use
  Company Number: JP-BAXTER-2020BAX022321

PATIENT
  Age: 12 Year
  Sex: Female

DRUGS (10)
  1. CELLTOP 100 MG/5 ML, SOLUTION INJECTABLE POUR PERFUSION [Suspect]
     Active Substance: ETOPOSIDE
     Indication: OVARIAN GERM CELL TERATOMA
     Dosage: UNK
     Route: 065
  2. CELLTOP 100 MG/5 ML, SOLUTION INJECTABLE POUR PERFUSION [Suspect]
     Active Substance: ETOPOSIDE
     Indication: DISEASE RECURRENCE
     Dosage: UNK UNK, QCY
     Route: 065
  3. RANDA [Suspect]
     Active Substance: CISPLATIN
     Indication: OVARIAN GERM CELL TERATOMA
     Dosage: INJ 50MG/100ML, BEP REGIMEN
     Route: 065
  4. CARBOPLATIN. [Suspect]
     Active Substance: CARBOPLATIN
     Indication: DISEASE RECURRENCE
  5. BLEOMYCIN [Suspect]
     Active Substance: BLEOMYCIN SULFATE
     Indication: OVARIAN GERM CELL TERATOMA
     Dosage: UNK UNK, QCY
     Route: 065
  6. BLEOMYCIN [Suspect]
     Active Substance: BLEOMYCIN SULFATE
     Indication: DISEASE RECURRENCE
     Route: 065
  7. IFOSFAMIDE FOR INJECTION [Suspect]
     Active Substance: IFOSFAMIDE
     Indication: OVARIAN GERM CELL TERATOMA
     Dosage: UNK, QCY, ICE REGIMEN
     Route: 065
  8. IFOSFAMIDE FOR INJECTION [Suspect]
     Active Substance: IFOSFAMIDE
     Indication: DISEASE RECURRENCE
  9. RANDA [Suspect]
     Active Substance: CISPLATIN
     Indication: DISEASE RECURRENCE
  10. CARBOPLATIN. [Suspect]
     Active Substance: CARBOPLATIN
     Indication: OVARIAN GERM CELL TERATOMA
     Dosage: UNK UNK, QCY, ICE REGIMEN
     Route: 065

REACTIONS (1)
  - Disease progression [Recovering/Resolving]
